FAERS Safety Report 5413205-8 (Version None)
Quarter: 2007Q3

REPORT INFORMATION
  Report Type: 
  Country: None (occurrence: None)
  Receive Date: 20070814
  Receipt Date: 20070810
  Transmission Date: 20080115
  Serious: Yes (Death)
  Sender: FDA-Public Use
  Company Number: PHNU2007DE02822

PATIENT
  Age: 33 Year
  Sex: Male

DRUGS (2)
  1. FORADIL [Suspect]
     Indication: ALLERGY TO ANIMAL
  2. AARANE [Suspect]

REACTIONS (3)
  - ACCIDENTAL OVERDOSE [None]
  - BRONCHOSPASM [None]
  - RESUSCITATION [None]
